FAERS Safety Report 21751217 (Version 1)
Quarter: 2022Q4

REPORT INFORMATION
  Report Type: Spontaneous
  Country: AU (occurrence: AU)
  Receive Date: 20221220
  Receipt Date: 20221220
  Transmission Date: 20230113
  Serious: Yes (Other)
  Sender: FDA-Public Use
  Company Number: AU-TEVA-2022-AU-2835468

PATIENT
  Sex: Female

DRUGS (5)
  1. FENTANYL [Suspect]
     Active Substance: FENTANYL
     Indication: Product used for unknown indication
     Route: 065
  2. OXYCODONE [Suspect]
     Active Substance: OXYCODONE
     Indication: Product used for unknown indication
     Route: 065
  3. OXYCODONE HYDROCHLORIDE [Suspect]
     Active Substance: OXYCODONE HYDROCHLORIDE
     Indication: Product used for unknown indication
     Route: 065
  4. MORPHINE SULFATE [Suspect]
     Active Substance: MORPHINE SULFATE
     Indication: Product used for unknown indication
     Route: 065
  5. SUBOXONE [Concomitant]
     Active Substance: BUPRENORPHINE HYDROCHLORIDE\NALOXONE HYDROCHLORIDE
     Indication: Product used for unknown indication

REACTIONS (13)
  - Drug dependence [Unknown]
  - Drug use disorder [Unknown]
  - Major depression [Unknown]
  - Mental impairment [Unknown]
  - Alcohol use disorder [Unknown]
  - Disinhibition [Unknown]
  - Generalised anxiety disorder [Unknown]
  - Impulsive behaviour [Unknown]
  - Pain [Unknown]
  - Post-traumatic stress disorder [Unknown]
  - Psychiatric decompensation [Unknown]
  - Sleep disorder [Unknown]
  - Somatic symptom disorder [Unknown]
